FAERS Safety Report 8360935-4 (Version None)
Quarter: 2012Q2

REPORT INFORMATION
  Report Type: 
  Country: None (occurrence: None)
  Receive Date: 20120515
  Receipt Date: 20120508
  Transmission Date: 20120825
  Serious: Yes (Hospitalization, Other)
  Sender: FDA-Public Use
  Company Number: US-PFIZER INC-2005117842

PATIENT
  Sex: Female
  Weight: 52 kg

DRUGS (9)
  1. CYCRIN [Suspect]
     Indication: HORMONE REPLACEMENT THERAPY
     Dosage: UNK
     Route: 048
  2. PROVERA [Suspect]
     Indication: HORMONE REPLACEMENT THERAPY
     Dosage: 2.5 MG, UNK
     Route: 048
     Dates: start: 19960101, end: 20000401
  3. PREMARIN [Suspect]
     Indication: HORMONE REPLACEMENT THERAPY
     Dosage: 0.625 MG, UNK
     Route: 048
     Dates: start: 19960101, end: 20000401
  4. CIMETIDINE [Concomitant]
     Indication: ABDOMINAL PAIN UPPER
     Dosage: 400 MG, UNK
     Dates: start: 19940101
  5. LISINOPRIL [Concomitant]
     Indication: HYPERTENSION
     Dosage: UNK
     Dates: start: 19940101
  6. DIAZEPAM [Concomitant]
     Indication: ANXIETY
     Dosage: 2.5 MG, AS NEEDED
  7. MEDROXYPROGESTERONE ACETATE [Suspect]
     Indication: HORMONE REPLACEMENT THERAPY
     Dosage: 2.5 MG, UNK
     Route: 048
     Dates: start: 19960101, end: 20000401
  8. PAROXETINE [Concomitant]
     Indication: ANXIETY
     Dosage: UNK
     Dates: start: 19990101
  9. PREMPRO [Suspect]
     Indication: HORMONE REPLACEMENT THERAPY
     Dosage: 0.625 MG/2.5 MG
     Route: 048
     Dates: start: 20000401, end: 20010901

REACTIONS (3)
  - DEPRESSION [None]
  - ANXIETY [None]
  - BREAST CANCER FEMALE [None]
